FAERS Safety Report 17824209 (Version 1)
Quarter: 2020Q2

REPORT INFORMATION
  Report Type: Spontaneous
  Country: US (occurrence: US)
  Receive Date: 20200522
  Receipt Date: 20200522
  Transmission Date: 20200714
  Serious: Yes (Hospitalization)
  Sender: FDA-Public Use
  Company Number: None

PATIENT
  Sex: Female

DRUGS (11)
  1. GABAPENTIN. [Concomitant]
     Active Substance: GABAPENTIN
  2. VASCEPA [Concomitant]
     Active Substance: ICOSAPENT ETHYL
  3. FAMOTIDINE. [Concomitant]
     Active Substance: FAMOTIDINE
  4. XGEVA [Concomitant]
     Active Substance: DENOSUMAB
  5. CLONIDINE. [Concomitant]
     Active Substance: CLONIDINE
  6. CRESTOR [Concomitant]
     Active Substance: ROSUVASTATIN CALCIUM
  7. LOPERAMIDE [Concomitant]
     Active Substance: LOPERAMIDE
  8. LOSARTAN POT [Concomitant]
     Active Substance: LOSARTAN POTASSIUM
  9. IBRANCE [Suspect]
     Active Substance: PALBOCICLIB
     Indication: BREAST CANCER FEMALE
     Route: 048
     Dates: start: 20160604
  10. SUCRALFATE. [Concomitant]
     Active Substance: SUCRALFATE
  11. LETROZOLE. [Concomitant]
     Active Substance: LETROZOLE

REACTIONS (2)
  - Malaise [None]
  - Hypertension [None]
